FAERS Safety Report 19381059 (Version 1)
Quarter: 2021Q2

REPORT INFORMATION
  Report Type: Spontaneous
  Country: US (occurrence: US)
  Receive Date: 20210604
  Receipt Date: 20210604
  Transmission Date: 20210717
  Serious: Yes (Hospitalization)
  Sender: FDA-Public Use
  Company Number: None

PATIENT
  Sex: Male

DRUGS (9)
  1. GLIMEPIRIDE. [Concomitant]
     Active Substance: GLIMEPIRIDE
     Dates: start: 20201005
  2. WARFARIN [Concomitant]
     Active Substance: WARFARIN
     Dates: start: 20210107
  3. IPRATROPIUM/SOL ALBUTER [Concomitant]
     Dates: start: 20210531
  4. REPATHA [Suspect]
     Active Substance: EVOLOCUMAB
     Indication: HYPERCHOLESTEROLAEMIA
     Dosage: ?          OTHER FREQUENCY:EVERY 14 DAYS;?
     Route: 058
     Dates: start: 20180127
  5. DICLO/MISOPR [Concomitant]
     Dates: start: 20200826
  6. LOSARTAN. [Concomitant]
     Active Substance: LOSARTAN
     Dates: start: 20210330
  7. GABAPENTIN. [Concomitant]
     Active Substance: GABAPENTIN
     Dates: start: 20200825
  8. ISOSORB MONO [Concomitant]
     Active Substance: ISOSORBIDE MONONITRATE
     Dates: start: 20201216
  9. PANTOPRAZOLE [Concomitant]
     Active Substance: PANTOPRAZOLE
     Dates: start: 20201116

REACTIONS (2)
  - Therapy interrupted [None]
  - Surgery [None]
